FAERS Safety Report 6528544-7 (Version None)
Quarter: 2010Q1

REPORT INFORMATION
  Report Type: 
  Country: None (occurrence: None)
  Receive Date: 20100105
  Receipt Date: 20100105
  Transmission Date: 20100710
  Serious: Yes (Other)
  Sender: FDA-Public Use
  Company Number: None

PATIENT

DRUGS (1)
  1. BYETTA [Suspect]
     Indication: TYPE 2 DIABETES MELLITUS
     Dosage: 1 INJECTION BEFORE MEALS TWO TIMES DAILY SQ
     Route: 058
     Dates: start: 20091212, end: 20091231

REACTIONS (4)
  - NAUSEA [None]
  - PRODUCT FORMULATION ISSUE [None]
  - PRODUCT MEASURED POTENCY ISSUE [None]
  - VOMITING [None]
